FAERS Safety Report 7680384-1 (Version None)
Quarter: 2011Q3

REPORT INFORMATION
  Report Type: 
  Country: None (occurrence: None)
  Receive Date: 20110812
  Receipt Date: 20110810
  Transmission Date: 20111222
  Serious: Yes (Other)
  Sender: FDA-Public Use
  Company Number: DE-GLAXOSMITHKLINE-D0072343A

PATIENT
  Sex: Female

DRUGS (3)
  1. MALARONE [Suspect]
     Dosage: 350MG SEE DOSAGE TEXT
     Route: 048
     Dates: start: 20110810, end: 20110810
  2. WINE [Suspect]
     Route: 048
     Dates: start: 20110801, end: 20110801
  3. ACETAMINOPHEN [Suspect]
     Dosage: 15000MG PER DAY
     Route: 065
     Dates: start: 20110810, end: 20110810

REACTIONS (3)
  - SUICIDE ATTEMPT [None]
  - NO ADVERSE EVENT [None]
  - INTENTIONAL OVERDOSE [None]
